FAERS Safety Report 23641835 (Version 1)
Quarter: 2024Q1

REPORT INFORMATION
  Report Type: Report from Study
  Country: JP (occurrence: JP)
  Receive Date: 20240318
  Receipt Date: 20240318
  Transmission Date: 20240409
  Serious: Yes (Other)
  Sender: FDA-Public Use
  Company Number: JP-PBT-008839

PATIENT
  Age: 2 Year
  Sex: Female

DRUGS (2)
  1. TACROLIMUS [Interacting]
     Active Substance: TACROLIMUS
     Indication: Prophylaxis against graft versus host disease
     Dosage: CONTINUOUS INTRAVENOUS INFUSION
     Route: 042
     Dates: start: 200404, end: 202112
  2. METHOTREXATE [Interacting]
     Active Substance: METHOTREXATE
     Indication: Graft versus host disease
     Route: 042

REACTIONS (4)
  - Drug level increased [Unknown]
  - Product use in unapproved indication [Unknown]
  - Graft versus host disease [Unknown]
  - Drug interaction [Unknown]
